FAERS Safety Report 8583256-3 (Version None)
Quarter: 2012Q3

REPORT INFORMATION
  Report Type: 
  Country: None (occurrence: None)
  Receive Date: 20120809
  Receipt Date: 20120806
  Transmission Date: 20120928
  Serious: Yes (Other)
  Sender: FDA-Public Use
  Company Number: US-BAYER-2012-080657

PATIENT
  Age: 74 Year
  Sex: Female
  Weight: 73 kg

DRUGS (5)
  1. ANTIHISTAMINES [Concomitant]
  2. NAPROXEN (ALEVE) [Suspect]
     Dosage: UNK, PRN
     Route: 048
     Dates: start: 20120701
  3. DIAZEPAM [Concomitant]
  4. ALEVE (CAPLET) [Suspect]
     Dosage: UNK, PRN
     Route: 048
  5. ZOLPIDEM [Concomitant]

REACTIONS (4)
  - BLISTER [None]
  - DYSPNOEA [None]
  - SKIN DISORDER [None]
  - PRURITUS [None]
